FAERS Safety Report 7782458-3 (Version None)
Quarter: 2011Q3

REPORT INFORMATION
  Report Type: 
  Country: None (occurrence: None)
  Receive Date: 20110928
  Receipt Date: 20110919
  Transmission Date: 20111222
  Serious: Yes (Hospitalization, Other)
  Sender: FDA-Public Use
  Company Number: US-BIOGENIDEC-2008BI028341

PATIENT
  Age: 61 Year
  Sex: Female
  Weight: 70 kg

DRUGS (3)
  1. AVONEX [Suspect]
     Indication: MULTIPLE SCLEROSIS
     Route: 030
     Dates: start: 20011115, end: 20030101
  2. AVONEX [Suspect]
     Route: 030
     Dates: start: 20030101
  3. STEROIDS (NOS) [Concomitant]
     Indication: PRODUCT USED FOR UNKNOWN INDICATION

REACTIONS (12)
  - LOSS OF CONSCIOUSNESS [None]
  - KIDNEY INFECTION [None]
  - LYMPHOMA [None]
  - BREAST CANCER [None]
  - ADVERSE DRUG REACTION [None]
  - MOOD SWINGS [None]
  - URINARY INCONTINENCE [None]
  - CYSTITIS [None]
  - PYREXIA [None]
  - FAECAL INCONTINENCE [None]
  - BLOOD CHOLESTEROL INCREASED [None]
  - MULTIPLE SCLEROSIS RELAPSE [None]
